FAERS Safety Report 8719493 (Version 2)
Quarter: 2012Q4

REPORT INFORMATION
  Report Type: 
  Country: DE (occurrence: DE)
  Receive Date: 20120813
  Receipt Date: 20121128
  Transmission Date: 20130627
  Serious: Yes (Death)
  Sender: FDA-Public Use
  Company Number: DE-009507513-1208DEU003585

PATIENT
  Age: 82 Year
  Sex: Male
  Weight: 85 kg

DRUGS (5)
  1. TEMODAL [Suspect]
     Indication: GLIOBLASTOMA MULTIFORME
     Dosage: 390 mg, qd
     Route: 048
     Dates: start: 20120314, end: 20120315
  2. PANTOPRAZOLE [Concomitant]
     Dosage: 40 mg, qd
     Route: 048
  3. NAVOBAN [Concomitant]
     Indication: GLIOBLASTOMA MULTIFORME
     Dosage: 5 mg, qd
     Route: 048
     Dates: start: 20120314, end: 20120315
  4. DEXAMETHASONE [Concomitant]
     Indication: GLIOBLASTOMA MULTIFORME
     Dosage: 0.5 mg, UNK
     Route: 048
  5. ARLEVERT [Concomitant]
     Indication: DIZZINESS
     Dosage: 1-1-1
     Route: 048

REACTIONS (3)
  - Alveolitis [Fatal]
  - Atypical pneumonia [Fatal]
  - Respiratory failure [Fatal]
